FAERS Safety Report 9490892 (Version 3)
Quarter: 2013Q4

REPORT INFORMATION
  Report Type: Spontaneous
  Country: US (occurrence: US)
  Receive Date: 20130830
  Receipt Date: 20131007
  Transmission Date: 20140711
  Serious: No
  Sender: FDA-Public Use
  Company Number: US-PFIZER INC-2013247433

PATIENT
  Age: 66 Year
  Sex: Male
  Weight: 84.54 kg

DRUGS (12)
  1. SUTENT [Suspect]
     Indication: RENAL CELL CARCINOMA
     Dosage: 50 MG, CYCLIC (OTHER DAY FOR 7 DOSES, THEN OFF 1 WEEK AND TO REPEAT)
     Dates: start: 20130815
  2. METHOTREXATE [Concomitant]
     Indication: RHEUMATOID ARTHRITIS
     Dosage: 2.5 MG, (AS DIRECTED OR ONCE A WEEK)
     Route: 048
  3. PLAQUENIL [Concomitant]
     Indication: RHEUMATOID ARTHRITIS
     Dosage: 200 MG, 1X/DAY
  4. METFORMIN [Concomitant]
     Indication: TYPE 2 DIABETES MELLITUS
     Dosage: 850 MG, 2X/DAY
     Route: 048
  5. NORVASC [Concomitant]
     Dosage: 2.5 MG, 1X/DAY
     Route: 048
  6. ZOCOR [Concomitant]
     Dosage: 80 MG, 1X/DAY
     Route: 048
  7. LISINOPRIL [Concomitant]
     Dosage: 10 MG, (TAKE 3 ONCE DAILY)
     Route: 048
  8. LORAZEPAM [Concomitant]
     Dosage: UNK
  9. VITAMIN D [Concomitant]
     Dosage: UNK, ONCE DAILY
     Route: 048
  10. ASPIRIN [Concomitant]
     Dosage: 325 MG, 1X/DAY
  11. PRILOSEC [Concomitant]
     Dosage: 20 MG, 1X/DAY
     Route: 048
  12. NITROSTAT [Concomitant]
     Dosage: 0.3 MG, AS NEEDED
     Route: 060
     Dates: start: 20130815

REACTIONS (11)
  - Fatigue [Unknown]
  - Asthenia [Unknown]
  - Decreased appetite [Unknown]
  - Anaemia [Unknown]
  - Malaise [Unknown]
  - Dehydration [Unknown]
  - Nausea [Unknown]
  - Ageusia [Unknown]
  - Constipation [Unknown]
  - Cough [Unknown]
  - Mass [Unknown]
